FAERS Safety Report 6015677-7 (Version None)
Quarter: 2008Q4

REPORT INFORMATION
  Report Type: 
  Country: None (occurrence: None)
  Receive Date: 20081219
  Receipt Date: 20081219
  Transmission Date: 20090506
  Serious: Yes (Other)
  Sender: FDA-Public Use
  Company Number: None

PATIENT
  Age: 26 Year
  Sex: Female
  Weight: 45.3597 kg

DRUGS (1)
  1. CYMBALTA [Suspect]
     Indication: DEPRESSION
     Dosage: 60MG  ONCE DAILY PO
     Route: 048
     Dates: start: 20070523, end: 20070531

REACTIONS (2)
  - DIPLOPIA [None]
  - EYE MOVEMENT DISORDER [None]
